FAERS Safety Report 4431577-8 (Version None)
Quarter: 2004Q3

REPORT INFORMATION
  Report Type: 
  Country: None (occurrence: None)
  Receive Date: 20040726
  Receipt Date: 20040225
  Transmission Date: 20050211
  Serious: No
  Sender: FDA-Public Use
  Company Number: USA040258465

PATIENT
  Age: 79 Year
  Sex: Female
  Weight: 66 kg

DRUGS (7)
  1. FORTEO [Suspect]
     Indication: OSTEOPOROSIS
     Dosage: 20 UG DAY
     Dates: start: 20040123, end: 20040210
  2. GLIPIZIDE [Concomitant]
  3. LIPITOR [Concomitant]
  4. MEDROL [Concomitant]
  5. POTASSIUM CHLORIDE [Concomitant]
  6. NEXIUM [Concomitant]
  7. BUMEX [Concomitant]

REACTIONS (6)
  - ARTHRALGIA [None]
  - BALANCE DISORDER [None]
  - DIZZINESS [None]
  - FALL [None]
  - LIMB DISCOMFORT [None]
  - MUSCLE CRAMP [None]
